FAERS Safety Report 5059713-3 (Version None)
Quarter: 2006Q3

REPORT INFORMATION
  Report Type: 
  Country: None (occurrence: None)
  Receive Date: 20060718
  Receipt Date: 20060629
  Transmission Date: 20061208
  Serious: Yes (Other)
  Sender: FDA-Public Use
  Company Number: JP200606000027

PATIENT
  Age: 65 Year
  Sex: Female

DRUGS (2)
  1. EVISTA [Suspect]
     Indication: OSTEOPOROSIS
     Dosage: ORAL
     Route: 048
     Dates: start: 20051101
  2. THYRADIN        (THYROID) [Concomitant]

REACTIONS (1)
  - BLOOD THYROID STIMULATING HORMONE INCREASED [None]
